FAERS Safety Report 16733716 (Version 1)
Quarter: 2019Q3

REPORT INFORMATION
  Report Type: Spontaneous
  Country: CN (occurrence: CN)
  Receive Date: 20190823
  Receipt Date: 20190823
  Transmission Date: 20191005
  Serious: Yes (Hospitalization)
  Sender: FDA-Public Use
  Company Number: CN-BAXTER-2019BAX016421

PATIENT
  Age: 56 Year
  Sex: Female
  Weight: 68 kg

DRUGS (8)
  1. 0.9% SODIUM CHLORIDE INJECTION [Suspect]
     Active Substance: SODIUM CHLORIDE
     Indication: MEDICATION DILUTION
     Dosage: ENDOXAN 1000 MG + 0.9% SODIUM CHLORIDE
     Route: 041
     Dates: start: 20190730, end: 20190730
  2. AOMINGRUN [Suspect]
     Active Substance: DOCETAXEL
     Indication: BREAST CANCER FEMALE
     Dosage: AOMINGRUN + 0.9% SODIUM CHLORIDE 250 ML
     Route: 041
     Dates: start: 20190730, end: 20190730
  3. AOMINGRUN [Suspect]
     Active Substance: DOCETAXEL
     Dosage: DOSE RE-INTRODUCED. AOMINGRUN + 0.9% SODIUM CHLORIDE
     Route: 041
     Dates: start: 201908
  4. 0.9% SODIUM CHLORIDE INJECTION [Suspect]
     Active Substance: SODIUM CHLORIDE
     Dosage: AOMINGRUN 129 MG + 0.9% SODIUM CHLORIDE
     Route: 041
     Dates: start: 20190730, end: 20190730
  5. 0.9% SODIUM CHLORIDE INJECTION [Suspect]
     Active Substance: SODIUM CHLORIDE
     Dosage: DOSE RE-INTRODUCED. AOMINGRUN + 0.9% SODIUM CHLORIDE
     Route: 041
     Dates: start: 201908
  6. ENDOXAN [Suspect]
     Active Substance: CYCLOPHOSPHAMIDE
     Indication: BREAST CANCER FEMALE
     Dosage: ENDOXAN + 0.9% SODIUM CHLORIDE 100 ML
     Route: 041
     Dates: start: 20190730, end: 20190730
  7. ENDOXAN [Suspect]
     Active Substance: CYCLOPHOSPHAMIDE
     Dosage: DOSE RE-INTRODUCED. ENDOXAN + 0.9% SODIUM CHLORIDE
     Route: 041
     Dates: start: 201908
  8. 0.9% SODIUM CHLORIDE INJECTION [Suspect]
     Active Substance: SODIUM CHLORIDE
     Dosage: DOSE RE-INTRODUCED. ENDOXAN + 0.9% SODIUM CHLORIDE
     Route: 041
     Dates: start: 201908

REACTIONS (1)
  - Bone marrow failure [Recovered/Resolved]

NARRATIVE: CASE EVENT DATE: 20190808
